FAERS Safety Report 5910109-9 (Version None)
Quarter: 2008Q4

REPORT INFORMATION
  Report Type: 
  Country: None (occurrence: None)
  Receive Date: 20081007
  Receipt Date: 20071023
  Transmission Date: 20090506
  Serious: No
  Sender: FDA-Public Use
  Company Number: US-ASTRAZENECA-2007UW21868

PATIENT
  Age: 65 Year
  Sex: Female
  Weight: 77.1 kg

DRUGS (3)
  1. ARIMIDEX [Suspect]
     Indication: BREAST CANCER
     Route: 048
     Dates: start: 20061215
  2. ASPIRIN [Concomitant]
     Indication: CARDIOVASCULAR DISORDER
     Route: 048
  3. ZOVIRAX [Concomitant]
     Indication: HERPES SIMPLEX
     Route: 048

REACTIONS (19)
  - ABDOMINAL DISTENSION [None]
  - ALOPECIA [None]
  - ARTHRALGIA [None]
  - CARPAL TUNNEL SYNDROME [None]
  - CONSTIPATION [None]
  - COUGH [None]
  - DRY EYE [None]
  - DRY SKIN [None]
  - DYSPNOEA [None]
  - HOT FLUSH [None]
  - INSOMNIA [None]
  - JOINT CREPITATION [None]
  - LACRIMATION INCREASED [None]
  - LIBIDO DECREASED [None]
  - MOBILITY DECREASED [None]
  - ONYCHOMYCOSIS [None]
  - RESTLESS LEGS SYNDROME [None]
  - VISION BLURRED [None]
  - VULVOVAGINAL DRYNESS [None]
